FAERS Safety Report 19136689 (Version 1)
Quarter: 2021Q2

REPORT INFORMATION
  Report Type: Spontaneous
  Country: US (occurrence: US)
  Receive Date: 20210414
  Receipt Date: 20210414
  Transmission Date: 20210717
  Serious: No
  Sender: FDA-Public Use
  Company Number: US-GALDERMA-US2021002905

PATIENT
  Sex: Female

DRUGS (2)
  1. DIFFERIN GEL [Suspect]
     Active Substance: ADAPALENE
     Indication: ACNE
     Dosage: 0.1%
     Route: 061
     Dates: start: 20210114, end: 202101
  2. DIFFERIN GEL [Suspect]
     Active Substance: ADAPALENE
     Dosage: 0.1%
     Route: 061
     Dates: start: 202101

REACTIONS (6)
  - Erythema [Unknown]
  - Application site dryness [Recovered/Resolved]
  - Rash pruritic [Unknown]
  - Skin burning sensation [Unknown]
  - Application site exfoliation [Recovered/Resolved]
  - Skin discomfort [Unknown]

NARRATIVE: CASE EVENT DATE: 202101
